FAERS Safety Report 12133776 (Version 4)
Quarter: 2016Q2

REPORT INFORMATION
  Report Type: Report from Study
  Country: JP (occurrence: JP)
  Receive Date: 20160301
  Receipt Date: 20160428
  Transmission Date: 20160815
  Serious: Yes (Hospitalization, Disabling)
  Sender: FDA-Public Use
  Company Number: JP-AMGEN-JPNNI2016025149

PATIENT
  Age: 69 Year
  Sex: Male
  Weight: 48 kg

DRUGS (1)
  1. DENOSUMAB [Suspect]
     Active Substance: DENOSUMAB
     Indication: LUNG NEOPLASM MALIGNANT
     Dosage: 120 MG, UNK
     Route: 058
     Dates: start: 20130530, end: 20160118

REACTIONS (3)
  - Osteonecrosis of jaw [Not Recovered/Not Resolved]
  - Fall [Not Recovered/Not Resolved]
  - Ascites [Not Recovered/Not Resolved]

NARRATIVE: CASE EVENT DATE: 201601
